FAERS Safety Report 5988738-6 (Version None)
Quarter: 2008Q4

REPORT INFORMATION
  Report Type: 
  Country: None (occurrence: None)
  Receive Date: 20081210
  Receipt Date: 20081203
  Transmission Date: 20090506
  Serious: Yes (Hospitalization, Other)
  Sender: FDA-Public Use
  Company Number: PHHY2008ZA28683

PATIENT
  Sex: Male

DRUGS (2)
  1. VOLTAREN [Suspect]
     Indication: FATIGUE
     Dosage: 50 MG
     Route: 048
     Dates: start: 20040301
  2. VOLTAREN [Suspect]
     Indication: BACK INJURY

REACTIONS (2)
  - HAEMATURIA [None]
  - HAEMORRHAGE [None]
